FAERS Safety Report 5584116-2 (Version None)
Quarter: 2008Q1

REPORT INFORMATION
  Report Type: 
  Country: None (occurrence: None)
  Receive Date: 20080108
  Receipt Date: 20071227
  Transmission Date: 20080703
  Serious: Yes (Other)
  Sender: FDA-Public Use
  Company Number: NL-AMGEN-US253061

PATIENT
  Sex: Male
  Weight: 57 kg

DRUGS (7)
  1. ENBREL [Suspect]
     Indication: UVEITIS
     Route: 058
     Dates: start: 20061101, end: 20070301
  2. ENBREL [Suspect]
     Indication: JUVENILE ARTHRITIS
  3. CALCIUM/ERGOCALCIFEROL [Concomitant]
     Indication: PROPHYLAXIS
     Dosage: 500 MG/400 IU 1 TIME PER DAY
     Route: 065
  4. INDOCIN [Concomitant]
     Indication: JUVENILE ARTHRITIS
     Dosage: 3X25 MG
     Route: 065
  5. OMEPRAZOLE [Concomitant]
     Indication: PROPHYLAXIS
     Dosage: 20/WEEK
     Route: 065
  6. METHOTREXATE [Concomitant]
     Indication: JUVENILE ARTHRITIS
     Route: 065
  7. FOLIC ACID [Concomitant]
     Indication: PROPHYLAXIS
     Dosage: 5/WEEK
     Route: 065

REACTIONS (2)
  - CONDITION AGGRAVATED [None]
  - UVEITIS [None]
